FAERS Safety Report 8616161-4 (Version None)
Quarter: 2012Q3

REPORT INFORMATION
  Report Type: 
  Country: None (occurrence: None)
  Receive Date: 20120815
  Receipt Date: 20120815
  Transmission Date: 20120928
  Serious: Yes (Hospitalization, Other)
  Sender: FDA-Public Use
  Company Number: None

PATIENT
  Age: 58 Year
  Sex: Male
  Weight: 131.9967 kg

DRUGS (1)
  1. VICTOZA [Suspect]
     Indication: DIABETES MELLITUS
     Dosage: 1.8 MCG  QD SQ
     Route: 058
     Dates: start: 20120425, end: 20120726

REACTIONS (2)
  - PANCREATIC ENZYMES INCREASED [None]
  - ABDOMINAL PAIN UPPER [None]
